FAERS Safety Report 18562971 (Version 1)
Quarter: 2020Q4

REPORT INFORMATION
  Report Type: Spontaneous
  Country: FR (occurrence: FR)
  Receive Date: 20201201
  Receipt Date: 20201201
  Transmission Date: 20210114
  Serious: Yes (Hospitalization, Other)
  Sender: FDA-Public Use
  Company Number: FR-JNJFOC-20201150844

PATIENT
  Age: 60 Year
  Sex: Male
  Weight: 103 kg

DRUGS (15)
  1. ENBREL [Suspect]
     Active Substance: ETANERCEPT
     Indication: PRODUCT USED FOR UNKNOWN INDICATION
     Dosage: 100 MILLIGRAM, 1/WEEK
     Route: 058
     Dates: start: 20150630, end: 20160223
  2. IXEKIZUMAB [Concomitant]
     Active Substance: IXEKIZUMAB
     Dosage: 160 MILLIGRAM, 2/WEEK
     Route: 058
     Dates: start: 201612, end: 201701
  3. IXEKIZUMAB [Concomitant]
     Active Substance: IXEKIZUMAB
     Dosage: 80 MILLIGRAM, 2/WEEK
     Route: 065
     Dates: start: 201701, end: 201703
  4. IXEKIZUMAB [Concomitant]
     Active Substance: IXEKIZUMAB
     Dosage: 80 MILLIGRAM, 2/MONTH
     Route: 058
     Dates: start: 20200915
  5. COSENTYX [Suspect]
     Active Substance: SECUKINUMAB
     Indication: PRODUCT USED FOR UNKNOWN INDICATION
     Dosage: UNK
     Route: 065
     Dates: start: 20160726, end: 20161205
  6. SORIATANE [Suspect]
     Active Substance: ACITRETIN
     Indication: PRODUCT USED FOR UNKNOWN INDICATION
     Dosage: UNK
     Route: 065
     Dates: start: 1998
  7. IXEKIZUMAB [Concomitant]
     Active Substance: IXEKIZUMAB
     Indication: PRODUCT USED FOR UNKNOWN INDICATION
     Dosage: 80 MILLIGRAM, 2/WEEK
     Route: 065
     Dates: start: 201612, end: 201612
  8. IXEKIZUMAB [Concomitant]
     Active Substance: IXEKIZUMAB
     Dosage: 80 MILLIGRAM, EVERY 4 WEEKS
     Route: 065
     Dates: start: 201703, end: 20200915
  9. BETAMETHASONE DIPROPIONATE;CALCIPOTRIOL [Concomitant]
     Indication: PRODUCT USED FOR UNKNOWN INDICATION
     Dosage: UNK
     Route: 065
     Dates: start: 20150630, end: 2015
  10. DAIVONEX [Concomitant]
     Active Substance: CALCIPOTRIENE
     Indication: PRODUCT USED FOR UNKNOWN INDICATION
     Dosage: UNK
     Route: 065
  11. TRAMADOL/APAP [Suspect]
     Active Substance: ACETAMINOPHEN\TRAMADOL
     Indication: PRODUCT USED FOR UNKNOWN INDICATION
     Dosage: UNK
     Route: 065
     Dates: start: 20160111
  12. DAIVOBET [BETAMETHASONE DIPROPIONATE;CALCIPOTRIOL] [Concomitant]
     Indication: PRODUCT USED FOR UNKNOWN INDICATION
     Dosage: UNK
     Route: 065
     Dates: start: 2014
  13. ARCOXIA [Suspect]
     Active Substance: ETORICOXIB
     Indication: PRODUCT USED FOR UNKNOWN INDICATION
     Dosage: UNK
     Route: 048
     Dates: start: 20160111
  14. RAMIPRIL. [Suspect]
     Active Substance: RAMIPRIL
     Indication: PRODUCT USED FOR UNKNOWN INDICATION
     Dosage: UNK
     Route: 065
     Dates: start: 20180124, end: 201901
  15. RAMIPRIL. [Suspect]
     Active Substance: RAMIPRIL
     Dosage: UNK
     Route: 065
     Dates: start: 20190619

REACTIONS (2)
  - Acute myocardial infarction [Recovered/Resolved]
  - Type 2 diabetes mellitus [Not Recovered/Not Resolved]

NARRATIVE: CASE EVENT DATE: 201708
